FAERS Safety Report 4448975-9 (Version None)
Quarter: 2004Q3

REPORT INFORMATION
  Report Type: 
  Country: None (occurrence: None)
  Receive Date: 20040910
  Receipt Date: 20040902
  Transmission Date: 20050211
  Serious: Yes (Hospitalization)
  Sender: FDA-Public Use
  Company Number: 2004-03891

PATIENT
  Age: 24 Year
  Sex: Female

DRUGS (3)
  1. ACETAMINOPHEN/CODEINE  PHOSPHATE (WATSON LABORATORIES) (CODEINE PHOSPH [Suspect]
     Indication: ABDOMINAL PAIN
     Dosage: TOTAL COD. 60MG/PARACETAMOL 1G, ORAL
     Route: 048
     Dates: start: 20020301, end: 20020301
  2. CERVAGEM (GEMEPROST) 1MG [Suspect]
     Indication: ABORTION
     Dosage: SEE IMAGE
     Route: 067
     Dates: start: 20020301, end: 20020301
  3. MIFEGYNE (MIFEPRISTONE) 200MG [Suspect]
     Indication: ABORTION
     Dosage: 600 MG, ORAL
     Route: 048
     Dates: start: 20020301, end: 20020301

REACTIONS (2)
  - DRUG INTERACTION [None]
  - PANCREATITIS NECROTISING [None]
